FAERS Safety Report 17641311 (Version 1)
Quarter: 2020Q2

REPORT INFORMATION
  Report Type: Spontaneous
  Country: US (occurrence: US)
  Receive Date: 20200408
  Receipt Date: 20200408
  Transmission Date: 20200713
  Serious: No
  Sender: FDA-Public Use
  Company Number: US-AMGEN INC.-USASP2019218681

PATIENT
  Age: 42 Year
  Sex: Female

DRUGS (6)
  1. LANSOPRAZOLE. [Concomitant]
     Active Substance: LANSOPRAZOLE
  2. AIMOVIG [Suspect]
     Active Substance: ERENUMAB-AOOE
     Indication: MIGRAINE
     Dosage: 140 MILLIGRAM
     Route: 065
     Dates: start: 20190705
  3. METOPROLOL. [Concomitant]
     Active Substance: METOPROLOL
  4. IMIPRAMINE [Concomitant]
     Active Substance: IMIPRAMINE
  5. MIDODRINE [Concomitant]
     Active Substance: MIDODRINE
  6. ASPIRIN [ACETYLSALICYLIC ACID] [Concomitant]
     Active Substance: ASPIRIN

REACTIONS (3)
  - Injection site bruising [Unknown]
  - Alopecia [Not Recovered/Not Resolved]
  - Device issue [Unknown]

NARRATIVE: CASE EVENT DATE: 2019
